FAERS Safety Report 5395045-1 (Version None)
Quarter: 2007Q3

REPORT INFORMATION
  Report Type: 
  Country: None (occurrence: None)
  Receive Date: 20070718
  Receipt Date: 20070221
  Transmission Date: 20080115
  Serious: Yes (Hospitalization, Other)
  Sender: FDA-Public Use
  Company Number: 2006119517

PATIENT
  Sex: Female

DRUGS (2)
  1. CELEBREX [Suspect]
     Indication: PATELLOFEMORAL PAIN SYNDROME
     Dosage: 200 MG, ONCE OR TWICE, ORAL
     Route: 048
     Dates: start: 20020612
  2. VIOXX [Suspect]
     Dosage: ORAL
     Route: 048
     Dates: start: 19990916

REACTIONS (1)
  - CEREBROVASCULAR ACCIDENT [None]
